FAERS Safety Report 18800078 (Version 2)
Quarter: 2021Q1

REPORT INFORMATION
  Report Type: Spontaneous
  Country: US (occurrence: US)
  Receive Date: 20210128
  Receipt Date: 20210211
  Transmission Date: 20210419
  Serious: Yes (Hospitalization, Other)
  Sender: FDA-Public Use
  Company Number: US-JNJFOC-20210133945

PATIENT
  Age: 60 Year
  Sex: Male

DRUGS (2)
  1. MYCOPHENOLATE MOFETIL. [Suspect]
     Active Substance: MYCOPHENOLATE MOFETIL
     Indication: CARDIAC SARCOIDOSIS
     Route: 065
  2. REMICADE [Suspect]
     Active Substance: INFLIXIMAB
     Indication: CUTANEOUS SARCOIDOSIS
     Route: 042

REACTIONS (6)
  - Nocardiosis [Unknown]
  - Off label use [Unknown]
  - Product use in unapproved indication [Unknown]
  - Histoplasmosis cutaneous [Recovering/Resolving]
  - Herpes simplex [Unknown]
  - Septic shock [Recovering/Resolving]
